FAERS Safety Report 8924541 (Version 1)
Quarter: 2012Q4

REPORT INFORMATION
  Report Type: 
  Country: FR (occurrence: FR)
  Receive Date: 20121126
  Receipt Date: 20121126
  Transmission Date: 20130627
  Serious: Yes (Life-Threatening, Hospitalization, Other)
  Sender: FDA-Public Use
  Company Number: FR-ROCHE-850101129001

PATIENT
  Age: 60 Year
  Sex: Male
  Weight: 65 kg

DRUGS (6)
  1. CEFTRIAXONE SODIUM [Suspect]
     Indication: BACTERAEMIA
     Dosage: for 2 days
     Route: 065
     Dates: start: 19850322, end: 19850323
  2. PREDNISOLON [Concomitant]
     Route: 048
     Dates: start: 19850321, end: 19850403
  3. PARACETAMOL [Concomitant]
     Route: 048
     Dates: start: 19850321, end: 19850322
  4. CLORAZEPATE [Concomitant]
     Route: 048
     Dates: start: 19850321, end: 19850321
  5. DOXYCYCLINE [Concomitant]
     Route: 030
     Dates: start: 19850321, end: 19850419
  6. THEOPHYLLINE [Concomitant]
     Route: 055
     Dates: start: 19850321, end: 19850419

REACTIONS (2)
  - Hepatitis [Recovered/Resolved with Sequelae]
  - Hepatic encephalopathy [Unknown]
